FAERS Safety Report 8557033-3 (Version None)
Quarter: 2012Q2

REPORT INFORMATION
  Report Type: 
  Country: None (occurrence: None)
  Receive Date: 20120418
  Receipt Date: 20100826
  Transmission Date: 20120825
  Serious: Yes (Other)
  Sender: FDA-Public Use
  Company Number: PHEH2004US06066

PATIENT
  Age: 55 Year
  Sex: Female
  Weight: 68 kg

DRUGS (7)
  1. PREMPRO [Suspect]
     Indication: MENOPAUSE
     Dosage: 0.625/2.5 MG, ORAL
     Route: 048
     Dates: start: 20000101, end: 20020101
  2. ESTRADERM [Suspect]
     Indication: MENOPAUSE
     Dosage: 0.05 MG, QW2, TRANSDERMAL
     Route: 062
     Dates: start: 19960101, end: 20000101
  3. CYCRIN [Suspect]
     Indication: MENOPAUSE
     Dosage: 2.5 MG, ORAL
     Route: 048
     Dates: start: 19990101, end: 20000101
  4. MEDROXYPROGESTERONE ACETATE [Suspect]
     Indication: MENOPAUSE
  5. ETHINYL ESTRADIOL AND NORETHINDRONE [Suspect]
     Indication: MENOPAUSE
     Dosage: TRANSDERMAL
     Route: 062
     Dates: end: 20010101
  6. PROVERA [Suspect]
     Indication: HORMONE REPLACEMENT THERAPY
  7. PREMARIN [Suspect]
     Indication: HORMONE REPLACEMENT THERAPY

REACTIONS (33)
  - OSTEOARTHRITIS [None]
  - IMPAIRED WORK ABILITY [None]
  - HOT FLUSH [None]
  - BREAST NECROSIS [None]
  - OSTEOPENIA [None]
  - MALIGNANT BREAST LUMP REMOVAL [None]
  - UTERINE LEIOMYOMA [None]
  - BREAST CANCER STAGE II [None]
  - MUSCLE SPASMS [None]
  - BLOOD PRESSURE INCREASED [None]
  - DEPRESSION [None]
  - PAIN [None]
  - PELVIC PAIN [None]
  - BACK PAIN [None]
  - MUSCULOSKELETAL DISCOMFORT [None]
  - HEADACHE [None]
  - GENERAL PHYSICAL CONDITION ABNORMAL [None]
  - ARTHRALGIA [None]
  - RASH [None]
  - MAMMOPLASTY [None]
  - DEVICE FAILURE [None]
  - INSOMNIA [None]
  - MALAISE [None]
  - BREAST PROSTHESIS IMPLANTATION [None]
  - DERMAL CYST [None]
  - BONE PAIN [None]
  - POLYP [None]
  - BREAST CALCIFICATIONS [None]
  - DEFORMITY [None]
  - OVARIAN CYST [None]
  - INTERVERTEBRAL DISC PROTRUSION [None]
  - EXPLORATORY OPERATION [None]
  - ATROPHIC VULVOVAGINITIS [None]
